FAERS Safety Report 5294028-X (Version None)
Quarter: 2007Q2

REPORT INFORMATION
  Report Type: 
  Country: None (occurrence: None)
  Receive Date: 20070405
  Receipt Date: 20070322
  Transmission Date: 20071010
  Serious: Yes (Hospitalization)
  Sender: FDA-Public Use
  Company Number: POMP-10913

PATIENT
  Age: 11 Year
  Sex: Male
  Weight: 31.5 kg

DRUGS (18)
  1. MYOZYME [Suspect]
     Indication: GLYCOGEN STORAGE DISEASE TYPE II
     Dosage: 630 MG Q2WKS IV
     Route: 042
     Dates: start: 20060615
  2. ZOFRAN [Concomitant]
  3. NYSTATIN [Concomitant]
  4. PENTASA [Concomitant]
  5. HEPARIN [Concomitant]
  6. ZYRTEC [Concomitant]
  7. PREVACID [Concomitant]
  8. PULMICORT [Concomitant]
  9. CHLORAL HYDRATE [Concomitant]
  10. ENTOCORT [Concomitant]
  11. NEXIUM [Concomitant]
  12. CALCIUM [Concomitant]
  13. VITAMIN D [Concomitant]
  14. ELAMAX [Concomitant]
  15. MYLANTA [Concomitant]
  16. DIURIL [Concomitant]
  17. CLOZAPINE [Concomitant]
  18. DRISDOL [Concomitant]

REACTIONS (2)
  - APPENDICITIS [None]
  - DEHYDRATION [None]
